FAERS Safety Report 12605954 (Version 1)
Quarter: 2016Q3

REPORT INFORMATION
  Report Type: Spontaneous
  Country: US (occurrence: None)
  Receive Date: 20160728
  Receipt Date: 20160728
  Transmission Date: 20161109
  Serious: Yes (Other)
  Sender: FDA-Public Use
  Company Number: None

PATIENT
  Age: 38 Year
  Sex: Female
  Weight: 76.2 kg

DRUGS (9)
  1. PRISTIQ EXTENDED-RELEASE [Suspect]
     Active Substance: DESVENLAFAXINE SUCCINATE
     Indication: ANXIETY
  2. SINGULAIR [Concomitant]
     Active Substance: MONTELUKAST SODIUM
  3. NASONEX [Concomitant]
     Active Substance: MOMETASONE FUROATE
  4. MVI WITH IRON [Concomitant]
  5. B6 [Concomitant]
     Active Substance: PYRIDOXINE HYDROCHLORIDE
  6. FLAXSEED [Concomitant]
     Active Substance: FLAX SEED
  7. ZYRTEC-D [Concomitant]
     Active Substance: CETIRIZINE HYDROCHLORIDE\PSEUDOEPHEDRINE HYDROCHLORIDE
  8. ASTELIN [Concomitant]
     Active Substance: AZELASTINE HYDROCHLORIDE
  9. CALCIUM [Concomitant]
     Active Substance: CALCIUM

REACTIONS (2)
  - Constipation [None]
  - Weight increased [None]
